FAERS Safety Report 22622604 (Version 1)
Quarter: 2023Q2

REPORT INFORMATION
  Report Type: Report from Study
  Country: ES (occurrence: ES)
  Receive Date: 20230621
  Receipt Date: 20230621
  Transmission Date: 20230721
  Serious: Yes (Hospitalization, Other)
  Sender: FDA-Public Use
  Company Number: ES-CELLTRION INC.-2023ES012197

PATIENT

DRUGS (23)
  1. RITUXIMAB [Suspect]
     Active Substance: RITUXIMAB
     Indication: Follicular lymphoma
     Dosage: 375 MG/M2, 1/WEEK
     Route: 042
     Dates: start: 20230518, end: 20230525
  2. LENALIDOMIDE [Suspect]
     Active Substance: LENALIDOMIDE
     Indication: Follicular lymphoma
     Dosage: 10 MG, QD
     Route: 048
     Dates: start: 20230518, end: 20230524
  3. EPCORITAMAB [Suspect]
     Active Substance: EPCORITAMAB
     Indication: Follicular lymphoma
     Dosage: 0.16 MG PRIMING DOSE; C1, D1, TOTAL; TOTAL
     Route: 058
     Dates: start: 20230518, end: 20230518
  4. EPCORITAMAB [Suspect]
     Active Substance: EPCORITAMAB
     Dosage: 0.16 MG PRIMING DOSE; C1, D1, TOTAL; TOTAL
     Route: 058
     Dates: start: 20230525, end: 20230525
  5. NOVORAPID [Concomitant]
     Active Substance: INSULIN ASPART
  6. SERTRALINE [Concomitant]
     Active Substance: SERTRALINE HYDROCHLORIDE
  7. LINAGLIPTIN [Concomitant]
     Active Substance: LINAGLIPTIN
  8. LORAZEPAM [Concomitant]
     Active Substance: LORAZEPAM
     Dosage: UNK
     Dates: start: 20150219
  9. DAPAGLIFLOZIN [Concomitant]
     Active Substance: DAPAGLIFLOZIN
  10. BISOPROLOL [Concomitant]
     Active Substance: BISOPROLOL
  11. LOSARTAN [Concomitant]
     Active Substance: LOSARTAN
  12. MIRTAZAPINE [Concomitant]
     Active Substance: MIRTAZAPINE
  13. INSULIN NOS [Concomitant]
     Active Substance: INSULIN NOS
  14. OMEPRAZOLE [Concomitant]
     Active Substance: OMEPRAZOLE
  15. FUROSEMIDE [Concomitant]
     Active Substance: FUROSEMIDE
  16. AMLODIPINE [Concomitant]
     Active Substance: AMLODIPINE BESYLATE
  17. NITROGLYCERIN [Concomitant]
     Active Substance: NITROGLYCERIN
  18. CIPROFLOXACIN [Concomitant]
     Active Substance: CIPROFLOXACIN
  19. PENTAMIDINE [Concomitant]
     Active Substance: PENTAMIDINE
  20. ATORVASTATIN [Concomitant]
     Active Substance: ATORVASTATIN
  21. EMPAGLIFLOZIN [Concomitant]
     Active Substance: EMPAGLIFLOZIN
  22. ACYCLOVIR [Concomitant]
     Active Substance: ACYCLOVIR
  23. CLOPIDOGREL [Concomitant]
     Active Substance: CLOPIDOGREL BISULFATE
     Dosage: UNK
     Dates: start: 20230518

REACTIONS (4)
  - Renal impairment [Not Recovered/Not Resolved]
  - Odynophagia [Not Recovered/Not Resolved]
  - Diarrhoea [Not Recovered/Not Resolved]
  - Asthenia [Not Recovered/Not Resolved]

NARRATIVE: CASE EVENT DATE: 20230525
